FAERS Safety Report 9924699 (Version 1)
Quarter: 2014Q1

REPORT INFORMATION
  Report Type: Spontaneous
  Country: IT (occurrence: None)
  Receive Date: 20140220
  Receipt Date: 20140220
  Transmission Date: 20141002
  Serious: Yes (Other)
  Sender: FDA-Public Use
  Company Number: FK201400432

PATIENT
  Age: 36 Month
  Sex: Male

DRUGS (1)
  1. VALPROATE (MANUFACTURER UNKNOWN) (VALPROATE SODIUM) (VALPROATE SODIUM) [Suspect]
     Indication: PETIT MAL EPILEPSY
     Dosage: 65.5 MCG/ML, 20 MG/KG BODY

REACTIONS (2)
  - Petit mal epilepsy [None]
  - Condition aggravated [None]
